FAERS Safety Report 7545994-0 (Version None)
Quarter: 2011Q2

REPORT INFORMATION
  Report Type: 
  Country: None (occurrence: None)
  Receive Date: 20110614
  Receipt Date: 20110531
  Transmission Date: 20111010
  Serious: Yes (Other)
  Sender: FDA-Public Use
  Company Number: PHHY2011NL47953

PATIENT
  Sex: Male

DRUGS (2)
  1. ZOMETA [Suspect]
     Indication: PROSTATE CANCER METASTATIC
     Dosage: 4 MG PER 28 DAYS
     Route: 042
     Dates: start: 20110505
  2. ZOMETA [Suspect]
     Dosage: 4 MG PER 28 DAYS
     Route: 042
     Dates: start: 20110531

REACTIONS (3)
  - ARRHYTHMIA [None]
  - MYALGIA [None]
  - MALAISE [None]
